FAERS Safety Report 5935866-7 (Version None)
Quarter: 2008Q4

REPORT INFORMATION
  Report Type: 
  Country: None (occurrence: None)
  Receive Date: 20081030
  Receipt Date: 20081027
  Transmission Date: 20090506
  Serious: Yes (Disabling)
  Sender: FDA-Public Use
  Company Number: DE-BRISTOL-MYERS SQUIBB COMPANY-14339360

PATIENT
  Age: 68 Year
  Sex: Female

DRUGS (8)
  1. KARVEZIDE TABS 300MG/12.5MG [Suspect]
     Indication: HYPERTENSION
     Dates: start: 20050802, end: 20081001
  2. LEVOTHYROXINE SODIUM [Suspect]
     Indication: HYPOTHYROIDISM
     Dosage: FORMULATION: L-THROXIN HENNING TABLETS
     Dates: end: 20081001
  3. ACTONEL + CALCIUM [Suspect]
     Indication: OSTEOPOROSIS
     Dosage: ACTONEL 35 CALCIUM 500 TABLETS
     Dates: start: 20051219, end: 20081001
  4. LANSOPRAZOLE [Suspect]
     Indication: REFLUX OESOPHAGITIS
     Dates: end: 20081001
  5. LANSOPRAZOLE [Suspect]
     Indication: GASTRITIS
     Dates: end: 20081001
  6. SIRDALUD [Concomitant]
     Dosage: SIRDALUD 2
  7. DICLOFENAC [Concomitant]
     Dosage: DICLOFENAC 75
  8. LIMPTAR [Concomitant]

REACTIONS (1)
  - GINGIVAL HYPERPLASIA [None]
